FAERS Safety Report 7200975-1 (Version None)
Quarter: 2010Q4

REPORT INFORMATION
  Report Type: 
  Country: None (occurrence: None)
  Receive Date: 20101228
  Receipt Date: 20101216
  Transmission Date: 20110411
  Serious: Yes (Hospitalization)
  Sender: FDA-Public Use
  Company Number: FR-MERCK-1012FRA00101

PATIENT
  Age: 58 Year
  Sex: Female

DRUGS (10)
  1. VYTORIN [Suspect]
     Indication: DYSLIPIDAEMIA
     Route: 048
     Dates: start: 20101020, end: 20101026
  2. TERBINAFINE [Suspect]
     Indication: FUNGAL INFECTION
     Route: 048
     Dates: start: 20101005, end: 20101026
  3. BIFONAZOLE [Suspect]
     Indication: FUNGAL INFECTION
     Route: 061
     Dates: start: 20101005, end: 20101026
  4. BETAMETHASONE VALERATE [Suspect]
     Indication: FUNGAL INFECTION
     Route: 061
     Dates: start: 20101005, end: 20101026
  5. ACARBOSE [Suspect]
     Indication: TYPE 2 DIABETES MELLITUS
     Route: 048
     Dates: start: 20101020, end: 20101026
  6. METFORMIN HYDROCHLORIDE AND VILDAGLIPTIN [Suspect]
     Indication: TYPE 2 DIABETES MELLITUS
     Route: 048
     Dates: start: 20101020, end: 20101026
  7. CEFTRIAXONE SODIUM [Suspect]
     Indication: BRONCHOPNEUMONIA
     Route: 030
     Dates: start: 20101020, end: 20101026
  8. BETAMETHASONE AND DEXCHLORPHENIRAMINE MALEATE [Suspect]
     Indication: PRURITUS
     Route: 048
     Dates: start: 20101020, end: 20101026
  9. FUSIDATE SODIUM [Suspect]
     Indication: PARONYCHIA
     Route: 061
     Dates: start: 20101020, end: 20101026
  10. LEVOTHYROXINE SODIUM [Concomitant]
     Route: 048

REACTIONS (1)
  - ACUTE GENERALISED EXANTHEMATOUS PUSTULOSIS [None]
